FAERS Safety Report 7289529-9 (Version None)
Quarter: 2011Q1

REPORT INFORMATION
  Report Type: 
  Country: None (occurrence: None)
  Receive Date: 20110213
  Receipt Date: 20110207
  Transmission Date: 20110831
  Serious: Yes (Death)
  Sender: FDA-Public Use
  Company Number: US-US-EMD SERONO, INC.-7040648

PATIENT
  Sex: Female

DRUGS (1)
  1. REBIF [Suspect]
     Indication: MULTIPLE SCLEROSIS
     Dates: end: 20050309

REACTIONS (5)
  - NEUTROPENIA [None]
  - MULTIPLE SCLEROSIS [None]
  - DYSPNOEA [None]
  - INFLUENZA LIKE ILLNESS [None]
  - COLLAPSE OF LUNG [None]
